FAERS Safety Report 20616839 (Version 1)
Quarter: 2022Q1

REPORT INFORMATION
  Report Type: Spontaneous
  Country: CA (occurrence: CA)
  Receive Date: 20220321
  Receipt Date: 20220321
  Transmission Date: 20220423
  Serious: Yes (Life-Threatening, Other)
  Sender: FDA-Public Use
  Company Number: CA-JNJFOC-20220335351

PATIENT
  Age: 11 Day
  Sex: Male

DRUGS (1)
  1. SIMPONI [Suspect]
     Active Substance: GOLIMUMAB
     Indication: Product used for unknown indication
     Route: 064

REACTIONS (5)
  - Urosepsis [Recovering/Resolving]
  - Foetal exposure during pregnancy [Recovering/Resolving]
  - Poor feeding infant [Recovering/Resolving]
  - Tachycardia paroxysmal [Recovering/Resolving]
  - Feeling hot [Recovering/Resolving]
